FAERS Safety Report 8299707-8 (Version None)
Quarter: 2012Q2

REPORT INFORMATION
  Report Type: 
  Country: None (occurrence: None)
  Receive Date: 20120419
  Receipt Date: 20120213
  Transmission Date: 20120825
  Serious: Yes (Other)
  Sender: FDA-Public Use
  Company Number: US-ROCHE-GNE314028

PATIENT
  Sex: Female
  Weight: 103.51 kg

DRUGS (29)
  1. ALLEGRA-D 12 HOUR [Concomitant]
     Indication: RHINITIS ALLERGIC
     Dosage: DOSING:UNKNOWN; FREQUENCY: DAILY
     Route: 048
     Dates: start: 20100101
  2. XOPENEX [Concomitant]
     Indication: ASTHMA
     Dosage: ROUTE: INH; FREQUENCY: PRN
     Dates: start: 20110105
  3. PULMICORT [Concomitant]
     Indication: ASTHMA
     Dosage: TWICE A DAY
     Dates: start: 20011114
  4. VOLTAREN [Concomitant]
     Indication: PAIN
     Dosage: DOSING QID, FREQUENCY PRN
     Dates: start: 20100101
  5. METFORMIN HCL [Concomitant]
     Indication: HYPERGLYCAEMIA
     Dosage: 1 TABLET 2 TIMES A DAY
     Route: 048
     Dates: start: 20100101, end: 20110214
  6. OXYCONTIN [Concomitant]
     Indication: OSTEONECROSIS
     Dosage: PRN
     Route: 048
     Dates: start: 20111201
  7. OXYGEN [Concomitant]
     Indication: PULMONARY HYPERTENSION
  8. INTEGRA PLUS [Concomitant]
     Indication: ANAEMIA
     Route: 048
     Dates: start: 20110101
  9. PREVACID [Concomitant]
     Indication: GASTROOESOPHAGEAL REFLUX DISEASE
     Dosage: INDICATION; REFLUX
     Route: 048
     Dates: start: 20100212
  10. ZANAFLEX [Concomitant]
     Indication: FIBROMYALGIA
     Dosage: 3 TABS; QNS
     Route: 048
  11. SINGULAIR [Concomitant]
     Indication: ASTHMA
     Dosage: FREQUENCY: QNS
     Route: 048
  12. TRACLEER [Concomitant]
     Indication: PULMONARY HYPERTENSION
     Route: 048
     Dates: start: 20070401
  13. XANAX [Concomitant]
     Indication: ANXIETY
     Route: 048
     Dates: start: 20070101
  14. AMBIEN [Concomitant]
     Indication: INSOMNIA
     Dosage: FREQUENCY: QNS
     Route: 048
  15. IPRATROPIUM BROMIDE [Concomitant]
     Indication: ASTHMA
     Route: 045
     Dates: start: 20011001
  16. CRESTOR [Concomitant]
     Indication: HYPERCHOLESTEROLAEMIA
     Route: 048
     Dates: start: 20050101
  17. ESTRATEST H.S. [Concomitant]
     Dosage: INDICATION: HORMONE REPLACEMENT; DOSING:UNKNOWN; FREQUENCY: DAILY
     Route: 048
     Dates: start: 20090101
  18. LIDODERM [Concomitant]
     Indication: BACK PAIN
     Dosage: 12 HRS ON, 12 HRS OFF
     Route: 061
     Dates: start: 20111001
  19. LEXAPRO [Concomitant]
     Indication: DEPRESSION
     Dates: start: 20090101
  20. NASONEX [Concomitant]
     Indication: RHINITIS ALLERGIC
     Route: 048
     Dates: start: 20090915
  21. LASIX [Concomitant]
     Indication: OEDEMA
     Dosage: PRN
     Route: 048
     Dates: start: 20070101
  22. OXYGEN [Concomitant]
     Indication: ASTHMA
     Dosage: ROUTE: INH; FREQUENCY QHS
     Dates: start: 20100101
  23. OMALIZUMAB [Suspect]
     Indication: ASTHMA
     Dosage: 300 MG, Q2W
     Route: 058
     Dates: start: 20070101, end: 20110214
  24. OMALIZUMAB [Suspect]
     Indication: HYPERSENSITIVITY
  25. MICARDIS [Concomitant]
     Indication: HYPERTENSION
     Route: 048
     Dates: start: 20080101
  26. OXYCODONE HCL [Concomitant]
     Indication: OSTEONECROSIS
     Dosage: PRN
     Route: 048
     Dates: start: 20111201
  27. AMITRIPTYLINE HCL [Concomitant]
     Indication: INSOMNIA
     Dosage: QNS
     Route: 048
     Dates: start: 19990101
  28. PROAIR HFA [Concomitant]
     Indication: ASTHMA
     Dosage: ROUTE: INH; DOSING 2 PUFFS; PRN
  29. PATADAY [Concomitant]
     Indication: HYPERSENSITIVITY
     Dosage: ROUTE: OP, DOSING: 2 DROPS PER EYE
     Dates: start: 20090101

REACTIONS (5)
  - PRURITUS [None]
  - OSTEONECROSIS [None]
  - URTICARIA [None]
  - DYSPNOEA [None]
  - WHEEZING [None]
